FAERS Safety Report 5313451-8 (Version None)
Quarter: 2007Q2

REPORT INFORMATION
  Report Type: 
  Country: None (occurrence: None)
  Receive Date: 20070501
  Receipt Date: 20070420
  Transmission Date: 20071010
  Serious: Yes (Hospitalization, Other)
  Sender: FDA-Public Use
  Company Number: ES-JNJFOC-20070301426

PATIENT
  Sex: Male
  Weight: 84.1 kg

DRUGS (5)
  1. INFLIXIMAB [Suspect]
     Indication: PSORIASIS
     Route: 042
     Dates: start: 20060927, end: 20070108
  2. OMEPRAZOLE [Concomitant]
     Indication: GASTROINTESTINAL DISORDER THERAPY
     Route: 048
  3. AMLODIPINE [Concomitant]
     Indication: HYPERTENSION
     Route: 048
  4. ENALAPRIL [Concomitant]
     Indication: HYPERTENSION
     Route: 048
  5. ISONIAZID [Concomitant]
     Indication: ANTIBIOTIC PROPHYLAXIS
     Route: 048

REACTIONS (1)
  - TESTICULAR NEOPLASM [None]
